FAERS Safety Report 4284864-0 (Version None)
Quarter: 2004Q1

REPORT INFORMATION
  Report Type: 
  Country: None (occurrence: None)
  Receive Date: 20040202
  Receipt Date: 20040126
  Transmission Date: 20041129
  Serious: Yes (Hospitalization)
  Sender: FDA-Public Use
  Company Number: STA-AE-04-MTX-027

PATIENT
  Age: 71 Year
  Sex: Female

DRUGS (5)
  1. RHEUMATREX [Suspect]
     Indication: RHEUMATOID ARTHRITIS
     Dosage: 6 MG 1X PER 1 WK, ORAL
  2. FERROMIA (FERROUS CITRATE) [Concomitant]
  3. PREDNISOLONE [Concomitant]
  4. MOBIC [Concomitant]
  5. ACTONEL [Concomitant]

REACTIONS (2)
  - BONE MARROW DEPRESSION [None]
  - CONDITION AGGRAVATED [None]
